FAERS Safety Report 8266979-5 (Version None)
Quarter: 2012Q2

REPORT INFORMATION
  Report Type: 
  Country: None (occurrence: None)
  Receive Date: 20120409
  Receipt Date: 20120403
  Transmission Date: 20120825
  Serious: No
  Sender: FDA-Public Use
  Company Number: US-PFIZER INC-2012046967

PATIENT
  Sex: Male

DRUGS (3)
  1. SUTENT [Suspect]
     Indication: RENAL CELL CARCINOMA
  2. NEXIUM [Concomitant]
     Indication: GASTROOESOPHAGEAL REFLUX DISEASE
     Dosage: UNK
     Dates: start: 20100510
  3. SUTENT [Suspect]
     Indication: RENAL CANCER
     Dosage: 50 MG, 1X/DAY
     Route: 048
     Dates: start: 20120104

REACTIONS (7)
  - FLUID RETENTION [None]
  - STOMATITIS [None]
  - HYPERTENSION [None]
  - HEPATIC ENZYME INCREASED [None]
  - JAUNDICE [None]
  - FATIGUE [None]
  - BLOOD BILIRUBIN INCREASED [None]
